FAERS Safety Report 16911126 (Version 1)
Quarter: 2019Q4

REPORT INFORMATION
  Report Type: Spontaneous
  Country: US (occurrence: US)
  Receive Date: 20190820
  Receipt Date: 20190820
  Transmission Date: 20200122
  Serious: No
  Sender: FDA-Public Use
  Company Number: None

PATIENT

DRUGS (2)
  1. PRE-PEN [Suspect]
     Active Substance: BENZYLPENICILLOYL POLYLYSINE
     Indication: ALLERGY TEST
     Dosage: ?          OTHER FREQUENCY:TWICE;?
     Route: 023
  2. NO DRUG NAME [Concomitant]

REACTIONS (1)
  - Skin test positive [None]

NARRATIVE: CASE EVENT DATE: 20190513
